FAERS Safety Report 21566575 (Version 5)
Quarter: 2023Q2

REPORT INFORMATION
  Report Type: Spontaneous
  Country: US (occurrence: US)
  Receive Date: 20221108
  Receipt Date: 20230515
  Transmission Date: 20230722
  Serious: Yes (Other)
  Sender: FDA-Public Use
  Company Number: US-PFIZER INC-PV202200097787

PATIENT
  Age: 88 Year
  Sex: Female

DRUGS (1)
  1. IBRANCE [Suspect]
     Active Substance: PALBOCICLIB
     Dosage: 100 MG

REACTIONS (6)
  - Bone disorder [Unknown]
  - Hypoacusis [Unknown]
  - Musculoskeletal disorder [Unknown]
  - Memory impairment [Unknown]
  - Decreased interest [Unknown]
  - Dysphonia [Unknown]
